FAERS Safety Report 6145220-3 (Version None)
Quarter: 2009Q2

REPORT INFORMATION
  Report Type: 
  Country: None (occurrence: None)
  Receive Date: 20090406
  Receipt Date: 20090324
  Transmission Date: 20091009
  Serious: Yes (Other)
  Sender: FDA-Public Use
  Company Number: PT-ELI_LILLY_AND_COMPANY-PT200903006169

PATIENT
  Age: 44 Year
  Sex: Female

DRUGS (3)
  1. CYMBALTA [Suspect]
     Indication: DEPRESSION
     Dosage: 60 MG, UNKNOWN
     Route: 048
     Dates: start: 20090210, end: 20090214
  2. ETORICOXIB [Concomitant]
     Dosage: 90 MG, UNKNOWN
     Route: 048
     Dates: start: 20090211
  3. MEXAZOLAM [Concomitant]
     Dosage: UNK, UNKNOWN
     Route: 065
     Dates: start: 20090214

REACTIONS (2)
  - GENERALISED ERYTHEMA [None]
  - PRURITUS GENERALISED [None]
